FAERS Safety Report 18302913 (Version 2)
Quarter: 2020Q4

REPORT INFORMATION
  Report Type: Report from Study
  Country: ES (occurrence: ES)
  Receive Date: 20200924
  Receipt Date: 20201006
  Transmission Date: 20210113
  Serious: Yes (Hospitalization)
  Sender: FDA-Public Use
  Company Number: ES-ROCHE-2651268

PATIENT
  Age: 77 Year
  Sex: Male
  Weight: 68 kg

DRUGS (9)
  1. ENALAPRIL [Concomitant]
     Active Substance: ENALAPRIL
  2. AMLODIPINE [Concomitant]
     Active Substance: AMLODIPINE BESYLATE
     Dates: start: 20200423
  3. FUROSEMIDE. [Concomitant]
     Active Substance: FUROSEMIDE
     Dates: start: 20200423, end: 20200903
  4. BEVACIZUMAB. [Suspect]
     Active Substance: BEVACIZUMAB
     Indication: PLEURAL MESOTHELIOMA MALIGNANT
     Dosage: ON 25/JUN/2020, HE RECEIVED MOST RECENT DOSE OF BEVACIZUMAB 400 MG/16 ML
     Route: 042
     Dates: start: 20200110
  5. CARBOPLATIN. [Suspect]
     Active Substance: CARBOPLATIN
     Indication: PLEURAL MESOTHELIOMA MALIGNANT
     Dosage: ON 12/MAR/2020, HE RECEIVED MOST RECENT DOSE OF CARBOPLATIN AT AUC 5, 4-6 CYCLE
     Route: 042
     Dates: start: 20200110
  6. METFORMIN [Concomitant]
     Active Substance: METFORMIN HYDROCHLORIDE
  7. DUODART [Concomitant]
     Active Substance: DUTASTERIDE\TAMSULOSIN
  8. ATEZOLIZUMAB. [Suspect]
     Active Substance: ATEZOLIZUMAB
     Indication: PLEURAL MESOTHELIOMA MALIGNANT
     Dosage: ON 25/JUN/2020, HE RECEIVED MOST RECENT DOSE OF ATEZOLIZUMAB (1200 MG/20ML)
     Route: 042
     Dates: start: 20200110
  9. PEMETREXED. [Suspect]
     Active Substance: PEMETREXED
     Indication: PLEURAL MESOTHELIOMA MALIGNANT
     Dosage: 4-6 CYCLES?ON 12/MAR/2020, HE RECEIVED MOST RECENT DOSE OF PEMETREXED 830.7 MG AND 831 MG
     Route: 042
     Dates: start: 20200110

REACTIONS (2)
  - Renal disorder [Recovered/Resolved]
  - Tubulointerstitial nephritis [Recovering/Resolving]

NARRATIVE: CASE EVENT DATE: 20200718
